FAERS Safety Report 14721235 (Version 1)
Quarter: 2018Q1

REPORT INFORMATION
  Report Type: Spontaneous
  Country: US (occurrence: US)
  Receive Date: 20180331
  Receipt Date: 20180331
  Transmission Date: 20180509
  Serious: No
  Sender: FDA-Public Use
  Company Number: None

PATIENT
  Age: 30 Year
  Sex: Female
  Weight: 64.8 kg

DRUGS (5)
  1. LAMOTRIGINE. [Suspect]
     Active Substance: LAMOTRIGINE
     Indication: BIPOLAR DISORDER
  2. BIRTH CONTROL [Concomitant]
     Active Substance: UNSPECIFIED INGREDIENT
  3. MULTIVATIMINS [Concomitant]
  4. SYNTHROID [Concomitant]
     Active Substance: LEVOTHYROXINE SODIUM
  5. LAMITROGINE [Concomitant]
     Active Substance: LAMOTRIGINE

REACTIONS (7)
  - Withdrawal syndrome [None]
  - Muscle spasms [None]
  - Walking distance test abnormal [None]
  - Dizziness [None]
  - Toothache [None]
  - Visual impairment [None]
  - Feeling abnormal [None]

NARRATIVE: CASE EVENT DATE: 20180331
